FAERS Safety Report 7549076-3 (Version None)
Quarter: 2011Q2

REPORT INFORMATION
  Report Type: 
  Country: None (occurrence: None)
  Receive Date: 20110615
  Receipt Date: 20110608
  Transmission Date: 20111010
  Serious: Yes (Other)
  Sender: FDA-Public Use
  Company Number: BE-PFIZER INC-2011109676

PATIENT
  Age: 68 Year
  Sex: Male

DRUGS (4)
  1. XALATAN [Suspect]
     Indication: HYPERTONIA
     Dosage: UNK
     Route: 047
     Dates: start: 20110504, end: 20110505
  2. XALATAN [Suspect]
     Dosage: UNK
     Dates: start: 20110601, end: 20110601
  3. TIMABAK [Concomitant]
     Dosage: UNK
     Route: 047
  4. XALATAN [Suspect]
     Dosage: UNK
     Dates: start: 20020601, end: 20100401

REACTIONS (2)
  - ANTERIOR CHAMBER INFLAMMATION [None]
  - CATARACT OPERATION [None]
